FAERS Safety Report 19310411 (Version 1)
Quarter: 2021Q2

REPORT INFORMATION
  Report Type: Spontaneous
  Country: GB (occurrence: GB)
  Receive Date: 20210526
  Receipt Date: 20210526
  Transmission Date: 20210717
  Serious: Yes (Other)
  Sender: FDA-Public Use
  Company Number: GB-MYLANLABS-2021M1028143

PATIENT
  Age: 67 Year
  Sex: Male
  Weight: 111.57 kg

DRUGS (4)
  1. ATORVASTATIN [Concomitant]
     Active Substance: ATORVASTATIN
     Indication: ILL-DEFINED DISORDER
     Dosage: UNK
  2. AMLODIPINE [Suspect]
     Active Substance: AMLODIPINE BESYLATE
     Indication: ILL-DEFINED DISORDER
     Dosage: 5 MILLIGRAM, QD/5MG X 1 / 24
     Route: 048
     Dates: start: 20210328, end: 20210508
  3. AMLODIPINE [Suspect]
     Active Substance: AMLODIPINE BESYLATE
     Indication: HYPERTENSION
     Dosage: 5 MILLIGRAM, QD/ 5MG X 1 / 24
     Route: 048
     Dates: start: 20210328, end: 20210508
  4. TESTOGEL [Concomitant]
     Active Substance: TESTOSTERONE
     Indication: ILL-DEFINED DISORDER
     Dosage: UNK

REACTIONS (1)
  - Loss of libido [Recovering/Resolving]

NARRATIVE: CASE EVENT DATE: 20210331
